FAERS Safety Report 4263595-7 (Version None)
Quarter: 2004Q1

REPORT INFORMATION
  Report Type: 
  Country: None (occurrence: None)
  Receive Date: 20040102
  Receipt Date: 20031222
  Transmission Date: 20041129
  Serious: No
  Sender: FDA-Public Use
  Company Number: 03H-056-0245535-00

PATIENT
  Sex: 0

DRUGS (3)
  1. LEUCOVORIN CALCIUM [Suspect]
     Indication: CHEMOTHERAPY
     Dosage: 200 MG/M2, ONCE, INTRAVENOUS
     Route: 042
  2. FLUOROURACIL [Suspect]
     Indication: CHEMOTHERAPY
     Dosage: 400 MG/M2, ONCE, INTRAVENOUS BOLUS
     Route: 040
  3. FLUOROURACIL [Suspect]
     Dosage: 600 MG/M2, ONCE, INTRAVENOUS DRIP
     Route: 041

REACTIONS (1)
  - NEUTROPENIA [None]
